FAERS Safety Report 14910509 (Version 2)
Quarter: 2019Q3

REPORT INFORMATION
  Report Type: Spontaneous
  Country: US (occurrence: US)
  Receive Date: 20180517
  Receipt Date: 20190718
  Transmission Date: 20191004
  Serious: Yes (Hospitalization)
  Sender: FDA-Public Use
  Company Number: US-ALLERGAN-1826514US

PATIENT
  Sex: Male

DRUGS (1)
  1. SUCRALFATE - BP [Suspect]
     Active Substance: SUCRALFATE
     Indication: PRODUCT USED FOR UNKNOWN INDICATION
     Dosage: UNK
     Route: 065

REACTIONS (4)
  - Dysphagia [Unknown]
  - Erosive oesophagitis [Unknown]
  - Gastric mucosal calcinosis [Unknown]
  - Mucosal hypertrophy [Unknown]
